FAERS Safety Report 6504710-1 (Version None)
Quarter: 2009Q4

REPORT INFORMATION
  Report Type: 
  Country: None (occurrence: None)
  Receive Date: 20091218
  Receipt Date: 20091102
  Transmission Date: 20100525
  Serious: No
  Sender: FDA-Public Use
  Company Number: A0814399A

PATIENT
  Age: 45 Year
  Sex: Female

DRUGS (3)
  1. PROMACTA [Suspect]
     Indication: IDIOPATHIC THROMBOCYTOPENIC PURPURA
     Dosage: 50MG PER DAY
     Route: 048
     Dates: start: 20091101
  2. SYNTHROID [Concomitant]
  3. TUMS [Concomitant]

REACTIONS (2)
  - DYSGEUSIA [None]
  - HYPOGEUSIA [None]
